FAERS Safety Report 8319970-4 (Version None)
Quarter: 2012Q2

REPORT INFORMATION
  Report Type: 
  Country: None (occurrence: None)
  Receive Date: 20120427
  Receipt Date: 20120426
  Transmission Date: 20120825
  Serious: Yes (Death)
  Sender: FDA-Public Use
  Company Number: AU-ROCHE-1051650

PATIENT
  Sex: Male
  Weight: 82 kg

DRUGS (3)
  1. VEMURAFENIB [Suspect]
     Indication: METASTATIC MALIGNANT MELANOMA
     Route: 048
     Dates: start: 20120321
  2. MORPHINE ELIXIR [Concomitant]
     Indication: PAIN
     Route: 048
     Dates: start: 20120314, end: 20120322
  3. PIPERACILLIN AND TAZOBACTAM [Concomitant]
     Indication: INFECTION
     Route: 042
     Dates: start: 20120314, end: 20120322

REACTIONS (2)
  - DISEASE PROGRESSION [None]
  - MALIGNANT MELANOMA [None]
